FAERS Safety Report 4862741-1 (Version None)
Quarter: 2005Q4

REPORT INFORMATION
  Report Type: 
  Country: None (occurrence: None)
  Receive Date: 20051219
  Receipt Date: 20051205
  Transmission Date: 20060501
  Serious: Yes (Death)
  Sender: FDA-Public Use
  Company Number: 8013695

PATIENT
  Age: 18 Year
  Sex: Female

DRUGS (3)
  1. KEPPRA [Suspect]
     Dosage: 250 MG /D PO
     Route: 048
     Dates: start: 20051011, end: 20051013
  2. KEPPRA [Suspect]
     Dosage: 250 MG 2/D PO
     Route: 048
     Dates: start: 20051014, end: 20051119
  3. TEGRETOL [Concomitant]

REACTIONS (3)
  - CONVULSION [None]
  - MALAISE [None]
  - RASH [None]
